FAERS Safety Report 4596900-2 (Version None)
Quarter: 2005Q1

REPORT INFORMATION
  Report Type: 
  Country: None (occurrence: None)
  Receive Date: 20050228
  Receipt Date: 20050217
  Transmission Date: 20050727
  Serious: Yes (Hospitalization)
  Sender: FDA-Public Use
  Company Number: 2005-02-1158

PATIENT
  Age: 62 Year
  Sex: Male
  Weight: 72.5755 kg

DRUGS (5)
  1. INTRON A [Suspect]
     Indication: MALIGNANT MELANOMA
     Dosage: 20 MIU TIW SUBCUTANEOUS
     Route: 058
     Dates: start: 20041115, end: 20050209
  2. ZOLOFT [Concomitant]
  3. ATIVAN [Concomitant]
  4. MARINOL [Concomitant]
  5. PERCOCET [Concomitant]

REACTIONS (2)
  - CONFUSIONAL STATE [None]
  - INTERSTITIAL LUNG DISEASE [None]
